FAERS Safety Report 9695530 (Version 1)
Quarter: 2013Q4

REPORT INFORMATION
  Report Type: Spontaneous
  Country: US (occurrence: US)
  Receive Date: 20131119
  Receipt Date: 20131119
  Transmission Date: 20140711
  Serious: No
  Sender: FDA-Public Use
  Company Number: US-PFIZER INC-2013329221

PATIENT
  Age: 44 Year
  Sex: Female
  Weight: 53.52 kg

DRUGS (3)
  1. CELEBREX [Suspect]
     Indication: INFLAMMATION
     Dosage: UNK
     Route: 048
     Dates: start: 20131110, end: 20131112
  2. CELEBREX [Suspect]
     Dosage: UNK
     Route: 048
     Dates: start: 20131112, end: 201311
  3. TOPAMAX [Concomitant]
     Indication: MIGRAINE
     Dosage: UNK

REACTIONS (2)
  - Gastric disorder [Not Recovered/Not Resolved]
  - Skin reaction [Not Recovered/Not Resolved]
